FAERS Safety Report 9777127 (Version 1)
Quarter: 2013Q4

REPORT INFORMATION
  Report Type: Report from Study
  Country: US (occurrence: US)
  Receive Date: 20131221
  Receipt Date: 20131221
  Transmission Date: 20140711
  Serious: Yes (Other)
  Sender: FDA-Public Use
  Company Number: US-ROCHE-1323058

PATIENT
  Sex: Female

DRUGS (2)
  1. RITUXIMAB [Suspect]
     Indication: MANTLE CELL LYMPHOMA
     Route: 065
  2. BENDAMUSTINE [Concomitant]
     Indication: MANTLE CELL LYMPHOMA
     Route: 065

REACTIONS (1)
  - Respiratory distress [Unknown]
